FAERS Safety Report 9006915 (Version 4)
Quarter: 2013Q1

REPORT INFORMATION
  Report Type: Spontaneous
  Country: US (occurrence: US)
  Receive Date: 20130110
  Receipt Date: 20130124
  Transmission Date: 20140127
  Serious: Yes (Other)
  Sender: FDA-Public Use
  Company Number: US-JNJFOC-20130101575

PATIENT
  Sex: Male

DRUGS (3)
  1. REMICADE [Suspect]
     Indication: COLITIS ULCERATIVE
     Route: 042
  2. MESALAMINE [Concomitant]
     Indication: COLITIS ULCERATIVE
  3. STEROIDS NOS [Concomitant]
     Indication: COLITIS ULCERATIVE

REACTIONS (1)
  - Bowen^s disease [Unknown]
